FAERS Safety Report 9530935 (Version 1)
Quarter: 2013Q3

REPORT INFORMATION
  Report Type: Spontaneous
  Country: BR (occurrence: BR)
  Receive Date: 20130918
  Receipt Date: 20130918
  Transmission Date: 20140515
  Serious: Yes (Hospitalization)
  Sender: FDA-Public Use
  Company Number: BR-ASTRAZENECA-2013SE68654

PATIENT
  Age: 55 Year
  Sex: Male
  Weight: 75 kg

DRUGS (9)
  1. ATACAND [Suspect]
     Indication: BLOOD PRESSURE ABNORMAL
     Route: 048
     Dates: start: 201207
  2. ROSUVASTATIN CALCIUM [Suspect]
     Indication: BLOOD CHOLESTEROL INCREASED
     Route: 048
     Dates: start: 201207
  3. DIGOBAL [Concomitant]
  4. ASPIRINA PREVENT [Concomitant]
  5. ALDACTONE [Concomitant]
  6. CONCARDIO [Concomitant]
  7. TRAYENTA [Concomitant]
  8. GLIFAGE XR [Concomitant]
     Indication: BLOOD GLUCOSE ABNORMAL
  9. ZETIA [Concomitant]

REACTIONS (2)
  - Myocardial infarction [Recovered/Resolved]
  - Weight decreased [Unknown]
